FAERS Safety Report 6035502-8 (Version None)
Quarter: 2009Q1

REPORT INFORMATION
  Report Type: 
  Country: None (occurrence: None)
  Receive Date: 20090113
  Receipt Date: 20090106
  Transmission Date: 20090719
  Serious: Yes (Other)
  Sender: FDA-Public Use
  Company Number: BE-AVENTIS-200910090EU

PATIENT
  Age: 70 Year
  Sex: Male

DRUGS (3)
  1. ENOXAPARIN SODIUM [Suspect]
     Indication: PULMONARY EMBOLISM
  2. FRAXODI [Concomitant]
     Indication: PULMONARY EMBOLISM
  3. DIURETICS [Concomitant]

REACTIONS (3)
  - FAT EMBOLISM [None]
  - GASTRIC PERFORATION [None]
  - RENAL FAILURE ACUTE [None]
